FAERS Safety Report 9124019 (Version 1)
Quarter: 2013Q1

REPORT INFORMATION
  Report Type: Spontaneous
  Country: US (occurrence: US)
  Receive Date: 20130116
  Receipt Date: 20130116
  Transmission Date: 20140127
  Serious: No
  Sender: FDA-Public Use
  Company Number: US-BAUSCH-BL-2012-001591

PATIENT
  Age: 74 Year
  Sex: Male

DRUGS (2)
  1. DORZOLAMIDE HYDROCHLORIDE [Suspect]
     Indication: GLAUCOMA
     Dosage: 1 DROPS IN EACH EYE, TWO TIMES PER DAY
     Route: 047
     Dates: start: 20120909
  2. TRAVOPROST [Concomitant]

REACTIONS (1)
  - Eye irritation [Recovered/Resolved]
